FAERS Safety Report 10069593 (Version 1)
Quarter: 2014Q2

REPORT INFORMATION
  Report Type: Spontaneous
  Country: US (occurrence: US)
  Receive Date: 20140410
  Receipt Date: 20140410
  Transmission Date: 20141212
  Serious: No
  Sender: FDA-Public Use
  Company Number: US-BIOGENIDEC-2014BI033582

PATIENT
  Age: 37 Year
  Sex: Female

DRUGS (2)
  1. TYSABRI [Suspect]
     Indication: MULTIPLE SCLEROSIS
     Route: 042
     Dates: start: 20090204, end: 20100126
  2. TYSABRI [Suspect]
     Indication: MULTIPLE SCLEROSIS
     Route: 042
     Dates: start: 20110202, end: 20140217

REACTIONS (4)
  - Muscle disorder [Not Recovered/Not Resolved]
  - Limb injury [Not Recovered/Not Resolved]
  - Muscle spasticity [Recovered/Resolved]
  - Asthenia [Not Recovered/Not Resolved]
